FAERS Safety Report 6048979-9 (Version None)
Quarter: 2009Q1

REPORT INFORMATION
  Report Type: 
  Country: None (occurrence: None)
  Receive Date: 20090123
  Receipt Date: 20090116
  Transmission Date: 20090719
  Serious: Yes (Hospitalization)
  Sender: FDA-Public Use
  Company Number: A0764906A

PATIENT
  Age: 55 Year
  Sex: Male
  Weight: 70.5 kg

DRUGS (2)
  1. AVANDIA [Suspect]
     Dosage: 4MG TWICE PER DAY
     Route: 048
     Dates: start: 20030101, end: 20050101
  2. AVANDAMET [Suspect]
     Dosage: 100MG TWICE PER DAY
     Route: 048
     Dates: start: 20050101, end: 20070101

REACTIONS (4)
  - CARDIAC DISORDER [None]
  - CEREBROVASCULAR ACCIDENT [None]
  - MYOCARDIAL INFARCTION [None]
  - RENAL DISORDER [None]
